FAERS Safety Report 5874912-6 (Version None)
Quarter: 2008Q3

REPORT INFORMATION
  Report Type: 
  Country: None (occurrence: None)
  Receive Date: 20080904
  Receipt Date: 20080819
  Transmission Date: 20090109
  Serious: Yes (Other)
  Sender: FDA-Public Use
  Company Number: DAB-2008-00052

PATIENT
  Age: 77 Year
  Sex: Female

DRUGS (4)
  1. PACLITAXEL [Suspect]
     Indication: POROCARCINOMA
  2. CAPECITABINE (CAPECITABINE) [Suspect]
     Indication: POROCARCINOMA
  3. INTERFERON ALFA [Suspect]
     Indication: POROCARCINOMA
  4. RITUXIMAB (RITUXIMAB) [Suspect]
     Indication: CHRONIC LYMPHOCYTIC LEUKAEMIA

REACTIONS (1)
  - POROCARCINOMA [None]
